FAERS Safety Report 8490814-3 (Version None)
Quarter: 2012Q3

REPORT INFORMATION
  Report Type: 
  Country: None (occurrence: None)
  Receive Date: 20120706
  Receipt Date: 20120626
  Transmission Date: 20120928
  Serious: No
  Sender: FDA-Public Use
  Company Number: US-BIOGENIDEC-2012BI022743

PATIENT
  Age: 53 Year
  Sex: Female

DRUGS (3)
  1. AVONEX [Suspect]
     Indication: MULTIPLE SCLEROSIS
     Route: 030
     Dates: start: 20010915, end: 20081112
  2. AVONEX [Suspect]
     Route: 030
     Dates: end: 20100428
  3. AVONEX [Suspect]
     Route: 030
     Dates: start: 20100623

REACTIONS (3)
  - MASS [None]
  - INJECTION SITE RASH [None]
  - RASH [None]
